FAERS Safety Report 12127171 (Version 2)
Quarter: 2016Q1

REPORT INFORMATION
  Report Type: Report from Study
  Country: MX (occurrence: MX)
  Receive Date: 20160229
  Receipt Date: 20160311
  Transmission Date: 20160526
  Serious: No
  Sender: FDA-Public Use
  Company Number: PHHY2016MX025461

PATIENT
  Sex: Female

DRUGS (4)
  1. TRILEPTAL [Suspect]
     Active Substance: OXCARBAZEPINE
     Indication: CEREBRAL DISORDER
     Dosage: 2.5 MG (60 MG), QD
     Route: 065
     Dates: start: 2014, end: 20160220
  2. TRILEPTAL [Suspect]
     Active Substance: OXCARBAZEPINE
     Indication: INTELLECTUAL DISABILITY
  3. PASSIFLORINE [Concomitant]
     Indication: PRODUCT USED FOR UNKNOWN INDICATION
     Dosage: UNK
     Route: 065
  4. TRILEPTAL [Suspect]
     Active Substance: OXCARBAZEPINE
     Indication: AUTISM

REACTIONS (1)
  - Off label use [Recovered/Resolved]

NARRATIVE: CASE EVENT DATE: 2014
